FAERS Safety Report 7516870-4 (Version None)
Quarter: 2011Q2

REPORT INFORMATION
  Report Type: 
  Country: None (occurrence: None)
  Receive Date: 20110601
  Receipt Date: 20110525
  Transmission Date: 20111010
  Serious: No
  Sender: FDA-Public Use
  Company Number: PT-B.I. PHARMACEUTICALS,INC./RIDGEFIELD-2011-DE-02648PO

PATIENT
  Age: 77 Year
  Sex: Male

DRUGS (5)
  1. PANTOPRAZOLE [Concomitant]
  2. SPIRIVA [Suspect]
     Route: 055
     Dates: start: 20110501
  3. ALFUZOSIN HCL [Concomitant]
     Indication: BENIGN PROSTATIC HYPERPLASIA
  4. SPIRIVA [Suspect]
     Indication: CHRONIC OBSTRUCTIVE PULMONARY DISEASE
     Route: 055
     Dates: start: 20100901, end: 20110401
  5. DOMPERIDONE [Concomitant]

REACTIONS (1)
  - AGEUSIA [None]
